FAERS Safety Report 4430879-9 (Version None)
Quarter: 2004Q3

REPORT INFORMATION
  Report Type: 
  Country: None (occurrence: None)
  Receive Date: 20040823
  Receipt Date: 20040813
  Transmission Date: 20050211
  Serious: Yes (Life-Threatening, Hospitalization)
  Sender: FDA-Public Use
  Company Number: PL-GLAXOSMITHKLINE-B0342899A

PATIENT
  Age: 13 Year
  Sex: Male
  Weight: 33 kg

DRUGS (2)
  1. LAMOTRIGINE [Suspect]
     Indication: EPILEPSY
     Route: 048
     Dates: start: 20040719, end: 20040727
  2. VALPROIC ACID [Concomitant]
     Indication: EPILEPSY
     Dosage: 800MG PER DAY
     Route: 048
     Dates: start: 20040628, end: 20040802

REACTIONS (6)
  - BLISTER [None]
  - DERMATITIS ALLERGIC [None]
  - EPIDERMOLYSIS [None]
  - INJURY CORNEAL [None]
  - NONSPECIFIC REACTION [None]
  - VISION BLURRED [None]
